FAERS Safety Report 23326535 (Version 1)
Quarter: 2023Q4

REPORT INFORMATION
  Report Type: Spontaneous
  Country: FR (occurrence: FR)
  Receive Date: 20231221
  Receipt Date: 20231221
  Transmission Date: 20240110
  Serious: No
  Sender: FDA-Public Use
  Company Number: FR-JAZZ PHARMACEUTICALS-2023-FR-021636

PATIENT

DRUGS (12)
  1. ZEPZELCA [Suspect]
     Active Substance: LURBINECTEDIN
     Indication: Small cell lung cancer
     Dosage: 5.25 MILLIGRAM
     Dates: start: 20230530
  2. ZEPZELCA [Suspect]
     Active Substance: LURBINECTEDIN
     Dosage: 5.25 MILLIGRAM
     Dates: start: 20230611, end: 20230620
  3. ZEPZELCA [Suspect]
     Active Substance: LURBINECTEDIN
     Dosage: 4.1 MILLIGRAM
     Dates: start: 20230801, end: 20230913
  4. AMISULPRIDE [Concomitant]
     Active Substance: AMISULPRIDE
  5. LORAZEPAM [Concomitant]
     Active Substance: LORAZEPAM
  6. PROPRANOLOL HYDROCHLORIDE [Concomitant]
     Active Substance: PROPRANOLOL HYDROCHLORIDE
  7. OXAZEPAM [Concomitant]
     Active Substance: OXAZEPAM
  8. ESOMEPRAZOLE [Concomitant]
     Active Substance: ESOMEPRAZOLE
  9. BENSERAZIDE HYDROCHLORIDE\LEVODOPA [Concomitant]
     Active Substance: BENSERAZIDE HYDROCHLORIDE\LEVODOPA
  10. BRINTELLIX [Concomitant]
     Active Substance: VORTIOXETINE HYDROBROMIDE
  11. LYRICA [Concomitant]
     Active Substance: PREGABALIN
  12. TACITA [Concomitant]

REACTIONS (2)
  - Nausea [Recovering/Resolving]
  - Vomiting [Recovering/Resolving]
